FAERS Safety Report 9928287 (Version 1)
Quarter: 2014Q1

REPORT INFORMATION
  Report Type: Spontaneous
  Country: US (occurrence: None)
  Receive Date: 20140226
  Receipt Date: 20140226
  Transmission Date: 20141002
  Serious: Yes (Other)
  Sender: FDA-Public Use
  Company Number: None

PATIENT
  Age: 50 Year
  Sex: Female
  Weight: 83.92 kg

DRUGS (1)
  1. ENALAPRIL MALEATE 20 MG [Suspect]
     Indication: HYPERTENSION
     Dosage: 20 MG, 2X/DAY TWICE DAILY TAKEN BY MOUTH
     Route: 048

REACTIONS (2)
  - Blood pressure inadequately controlled [None]
  - Product substitution issue [None]
